FAERS Safety Report 7870600-5 (Version None)
Quarter: 2011Q4

REPORT INFORMATION
  Report Type: 
  Country: None (occurrence: None)
  Receive Date: 20111028
  Receipt Date: 20111028
  Transmission Date: 20120403
  Serious: Yes (Other)
  Sender: FDA-Public Use
  Company Number: None

PATIENT
  Age: 62 Year
  Sex: Female
  Weight: 60.9 kg

DRUGS (1)
  1. CLARITHROMYCIN [Suspect]
     Indication: HELICOBACTER GASTRITIS
     Dosage: 500MG TWICE DAILY ORAL
     Route: 048
     Dates: start: 20110611, end: 20110612

REACTIONS (7)
  - HEART RATE INCREASED [None]
  - DYSGEUSIA [None]
  - SENSATION OF HEAVINESS [None]
  - TONGUE DISCOLOURATION [None]
  - DIZZINESS [None]
  - SWOLLEN TONGUE [None]
  - CHILLS [None]
